FAERS Safety Report 5341621-1 (Version None)
Quarter: 2007Q2

REPORT INFORMATION
  Report Type: 
  Country: None (occurrence: None)
  Receive Date: 20070601
  Receipt Date: 20070521
  Transmission Date: 20071010
  Serious: Yes (Hospitalization)
  Sender: FDA-Public Use
  Company Number: US-JNJFOC-20061004942

PATIENT
  Sex: Male
  Weight: 63.5 kg

DRUGS (9)
  1. REMICADE [Suspect]
     Route: 042
  2. REMICADE [Suspect]
     Route: 042
  3. REMICADE [Suspect]
     Indication: CROHN'S DISEASE
     Route: 042
  4. 6-MP [Concomitant]
     Indication: CROHN'S DISEASE
  5. LIBRAX [Concomitant]
     Indication: CROHN'S DISEASE
  6. LOMOTIL [Concomitant]
     Indication: CROHN'S DISEASE
  7. IMODIUM [Concomitant]
     Indication: CROHN'S DISEASE
  8. ENTOCORT [Concomitant]
     Indication: CROHN'S DISEASE
  9. LYRICA [Concomitant]
     Indication: PAIN

REACTIONS (3)
  - ANAEMIA [None]
  - AORTIC STENOSIS [None]
  - GASTROINTESTINAL HAEMORRHAGE [None]
